FAERS Safety Report 15809214 (Version 1)
Quarter: 2019Q1

REPORT INFORMATION
  Report Type: Spontaneous
  Country: US (occurrence: US)
  Receive Date: 20190110
  Receipt Date: 20190110
  Transmission Date: 20190417
  Serious: No
  Sender: FDA-Public Use
  Company Number: US-ASTRAZENECA-2019SE01270

PATIENT
  Sex: Male
  Weight: 86.2 kg

DRUGS (1)
  1. LOKELMA [Suspect]
     Active Substance: SODIUM ZIRCONIUM CYCLOSILICATE
     Indication: HYPERKALAEMIA
     Route: 048
     Dates: start: 20181030

REACTIONS (6)
  - Intentional product misuse [Unknown]
  - Rash macular [Unknown]
  - Pruritus [Unknown]
  - Product dose omission [Unknown]
  - Memory impairment [Unknown]
  - Feeling abnormal [Unknown]
